FAERS Safety Report 6379741-5 (Version None)
Quarter: 2009Q3

REPORT INFORMATION
  Report Type: 
  Country: None (occurrence: None)
  Receive Date: 20090928
  Receipt Date: 20090918
  Transmission Date: 20100115
  Serious: Yes (Other)
  Sender: FDA-Public Use
  Company Number: US-BAXTER-2009BH014487

PATIENT
  Age: 35 Year
  Sex: Male

DRUGS (3)
  1. IFOSFAMIDE [Suspect]
     Indication: METASTASES TO MENINGES
  2. ETOPOSIDE [Concomitant]
     Indication: METASTASES TO MENINGES
     Route: 065
  3. CYTARABINE [Concomitant]
     Indication: METASTASES TO MENINGES
     Route: 065

REACTIONS (1)
  - HYPONATRAEMIA [None]
